FAERS Safety Report 6153809-0 (Version None)
Quarter: 2009Q2

REPORT INFORMATION
  Report Type: 
  Country: None (occurrence: None)
  Receive Date: 20090414
  Receipt Date: 20070905
  Transmission Date: 20091009
  Serious: Yes (Hospitalization, Other)
  Sender: FDA-Public Use
  Company Number: US-ASTRAZENECA-2006UW27330

PATIENT
  Age: 18982 Day
  Sex: Female
  Weight: 71.2 kg

DRUGS (24)
  1. SEROQUEL [Suspect]
     Indication: INSOMNIA
     Route: 048
     Dates: start: 20000101, end: 20040101
  2. SEROQUEL [Suspect]
     Dosage: 25-600 MG
     Route: 048
  3. ADVAIR HFA [Concomitant]
  4. CLONAZEPAM [Concomitant]
  5. NEURONTIN [Concomitant]
  6. SINGULAIR [Concomitant]
  7. PREDNISONE [Concomitant]
  8. LASIX [Concomitant]
  9. ATIVAN [Concomitant]
  10. POTASSIUM CHLORIDE [Concomitant]
  11. PLAVIX [Concomitant]
  12. ALBUTEROL [Concomitant]
  13. NEXIUM [Concomitant]
  14. CLARITIN [Concomitant]
  15. ZOCOR [Concomitant]
  16. CELEXA [Concomitant]
  17. PROVIGIL [Concomitant]
  18. WELLBUTRIN [Concomitant]
  19. HYDROCHLOROTHIAZIDE [Concomitant]
  20. NOVOLOG [Concomitant]
  21. OSCAL [Concomitant]
  22. CLONOPIN [Concomitant]
  23. RISPERDAL [Concomitant]
  24. DIOVAN [Concomitant]

REACTIONS (50)
  - ABDOMINAL PAIN [None]
  - ANOREXIA [None]
  - ARTHRITIS [None]
  - ASTHMA [None]
  - BURSITIS [None]
  - CATARACT [None]
  - CEREBROVASCULAR ACCIDENT [None]
  - CERVICAL VERTEBRAL FRACTURE [None]
  - CERVICOBRACHIAL SYNDROME [None]
  - CHRONIC OBSTRUCTIVE PULMONARY DISEASE [None]
  - CONVULSION [None]
  - DIABETES MELLITUS [None]
  - DIPLOPIA [None]
  - DIZZINESS [None]
  - DYSPNOEA [None]
  - DYSPNOEA PAROXYSMAL NOCTURNAL [None]
  - GINGIVAL BLEEDING [None]
  - GLAUCOMA [None]
  - HALLUCINATION, AUDITORY [None]
  - INCONTINENCE [None]
  - INSOMNIA [None]
  - LARYNGITIS [None]
  - LEUKOCYTOSIS [None]
  - LOWER LIMB FRACTURE [None]
  - LUMBAR VERTEBRAL FRACTURE [None]
  - LYMPHADENOPATHY [None]
  - MUSCLE SPASMS [None]
  - MUSCULOSKELETAL STIFFNESS [None]
  - MYOFASCIAL PAIN SYNDROME [None]
  - NECK PAIN [None]
  - NEUROPATHY PERIPHERAL [None]
  - NIGHT SWEATS [None]
  - OEDEMA PERIPHERAL [None]
  - ONYCHOMYCOSIS [None]
  - OROPHARYNGEAL PAIN [None]
  - OSTEOARTHRITIS [None]
  - OSTEONECROSIS [None]
  - OSTEOPOROSIS [None]
  - PAIN [None]
  - PANIC DISORDER [None]
  - PNEUMONIA [None]
  - RESPIRATORY FAILURE [None]
  - RESTLESS LEGS SYNDROME [None]
  - SPINAL COMPRESSION FRACTURE [None]
  - SPINAL OSTEOARTHRITIS [None]
  - SYNCOPE [None]
  - TACHYCARDIA [None]
  - TENDONITIS [None]
  - TREMOR [None]
  - WHEEZING [None]
